FAERS Safety Report 10679445 (Version 1)
Quarter: 2014Q4

REPORT INFORMATION
  Report Type: Spontaneous
  Country: US (occurrence: US)
  Receive Date: 20141229
  Receipt Date: 20141229
  Transmission Date: 20150529
  Serious: No
  Sender: FDA-Public Use
  Company Number: US-ABBVIE-14P-163-1240500-00

PATIENT
  Age: 13 Year
  Sex: Male
  Weight: 47.67 kg

DRUGS (3)
  1. CALCIUM PLUS VITAMIN D [Concomitant]
     Active Substance: CALCIUM\VITAMIN D
     Indication: SUPPLEMENTATION THERAPY
  2. HUMAN GROWTH HORMONE [Concomitant]
     Indication: GROWTH HORMONE DEFICIENCY
     Dates: start: 2010
  3. LUPRON DEPOT [Suspect]
     Active Substance: LEUPROLIDE ACETATE
     Indication: PRECOCIOUS PUBERTY
     Dates: start: 20140227

REACTIONS (5)
  - Gait disturbance [Recovering/Resolving]
  - Injection site rash [Recovered/Resolved]
  - Injection site pain [Recovered/Resolved]
  - Injection site swelling [Recovered/Resolved]
  - Abasia [Recovered/Resolved]

NARRATIVE: CASE EVENT DATE: 20140515
